FAERS Safety Report 7187318-7 (Version None)
Quarter: 2010Q4

REPORT INFORMATION
  Report Type: 
  Country: None (occurrence: None)
  Receive Date: 20101222
  Receipt Date: 20101213
  Transmission Date: 20110411
  Serious: Yes (Hospitalization, Other)
  Sender: FDA-Public Use
  Company Number: CO-GENENTECH-311380

PATIENT
  Sex: Female

DRUGS (2)
  1. MABTHERA [Suspect]
     Indication: SYSTEMIC LUPUS ERYTHEMATOSUS
     Dosage: 500 MG, Q28D
     Route: 042
     Dates: start: 20091120
  2. PREDNISOLONE [Concomitant]
     Indication: SYSTEMIC LUPUS ERYTHEMATOSUS
     Dosage: UNK
     Route: 048

REACTIONS (4)
  - ARTHRALGIA [None]
  - HEADACHE [None]
  - PYREXIA [None]
  - RENAL FAILURE [None]
